FAERS Safety Report 23250849 (Version 1)
Quarter: 2023Q4

REPORT INFORMATION
  Report Type: Spontaneous
  Country: US (occurrence: None)
  Receive Date: 20231130
  Receipt Date: 20231130
  Transmission Date: 20240110
  Serious: No
  Sender: FDA-Public Use
  Company Number: None

PATIENT
  Age: 72 Year
  Sex: Female
  Weight: 63.05 kg

DRUGS (3)
  1. FORTEO [Suspect]
     Active Substance: TERIPARATIDE
     Indication: Osteoporosis postmenopausal
     Dosage: FREQUENCY : DAILY;?
     Route: 058
     Dates: start: 202307
  2. FORTEO [Suspect]
     Active Substance: TERIPARATIDE
     Indication: Osteoarthritis
  3. FORTEO [Suspect]
     Active Substance: TERIPARATIDE
     Indication: Fibromyalgia

REACTIONS (1)
  - Spinal operation [None]
